FAERS Safety Report 8230656-7 (Version None)
Quarter: 2012Q1

REPORT INFORMATION
  Report Type: 
  Country: None (occurrence: None)
  Receive Date: 20120323
  Receipt Date: 20120316
  Transmission Date: 20120608
  Serious: Yes (Hospitalization)
  Sender: FDA-Public Use
  Company Number: BE-ASTELLAS-2012US002355

PATIENT
  Sex: Male
  Weight: 52 kg

DRUGS (6)
  1. ERLOTINIB HYDROCHLORIDE [Suspect]
     Indication: NON-SMALL CELL LUNG CANCER
     Dosage: 150 MG, UID/QD
     Route: 048
     Dates: start: 20120220
  2. SOLU-MEDROL [Concomitant]
     Indication: METASTASES TO CENTRAL NERVOUS SYSTEM
     Dosage: 160 MG, UID/QD
     Route: 042
     Dates: start: 20120227, end: 20120302
  3. MEDROL [Concomitant]
     Dosage: 128 MG, UID/QD
     Route: 048
     Dates: start: 20120308, end: 20120312
  4. ASPIRIN [Concomitant]
     Indication: THROMBOSIS PROPHYLAXIS
     Dosage: 80 MG, UID/QD
     Route: 048
     Dates: start: 20100201
  5. KEPPRA [Concomitant]
     Indication: EPILEPSY
     Dosage: 1500 MG, UNKNOWN/D
     Route: 048
     Dates: start: 20101101
  6. MEDROL [Concomitant]
     Indication: METASTASES TO CENTRAL NERVOUS SYSTEM
     Dosage: 128 MG, UID/QD
     Route: 048
     Dates: start: 20120303, end: 20120303

REACTIONS (4)
  - INFECTION [None]
  - PERIVENTRICULAR LEUKOMALACIA [None]
  - CONFUSIONAL STATE [None]
  - PYREXIA [None]
